FAERS Safety Report 21381802 (Version 1)
Quarter: 2022Q3

REPORT INFORMATION
  Report Type: Spontaneous
  Country: US (occurrence: None)
  Receive Date: 20220926
  Receipt Date: 20220926
  Transmission Date: 20221027
  Serious: Yes (Other)
  Sender: FDA-Public Use
  Company Number: None

PATIENT
  Age: 51 Year
  Sex: Female
  Weight: 74.25 kg

DRUGS (13)
  1. FLUCONAZOLE [Suspect]
     Active Substance: FLUCONAZOLE
     Indication: Oral candidiasis
     Dates: start: 20220919, end: 20220922
  2. NYSTATIN [Suspect]
     Active Substance: NYSTATIN
  3. PRAZOSIN [Concomitant]
     Active Substance: PRAZOSIN
  4. GABAPENTIN [Concomitant]
     Active Substance: GABAPENTIN
  5. ACETAMINOPHEN\HYDROCODONE [Suspect]
     Active Substance: ACETAMINOPHEN\HYDROCODONE
  6. sumatript an [Concomitant]
  7. QUETIAPINE [Concomitant]
     Active Substance: QUETIAPINE
  8. BACLOFEN [Suspect]
     Active Substance: BACLOFEN
  9. DILTIAZEM [Concomitant]
     Active Substance: DILTIAZEM
  10. fluoxe tine cpap machine [Concomitant]
  11. tens unit (new meds) Banophen [Concomitant]
  12. PREDNISONE [Concomitant]
     Active Substance: PREDNISONE
  13. HYDROXYZINE PAMOATE [Concomitant]
     Active Substance: HYDROXYZINE PAMOATE

REACTIONS (4)
  - Rash [None]
  - Rash pruritic [None]
  - Burning sensation [None]
  - Pain [None]

NARRATIVE: CASE EVENT DATE: 20220923
